FAERS Safety Report 6547053-2 (Version None)
Quarter: 2010Q1

REPORT INFORMATION
  Report Type: 
  Country: None (occurrence: None)
  Receive Date: 20100119
  Receipt Date: 20100108
  Transmission Date: 20100710
  Serious: Yes (Other)
  Sender: FDA-Public Use
  Company Number: 1022556-2010-00003

PATIENT
  Age: 68 Year
  Sex: Male
  Weight: 106.1417 kg

DRUGS (1)
  1. ACT FLUORIDE RINSE MINT 18 OZ [Suspect]
     Indication: DENTAL CARIES
     Dosage: 10 ML, DAILY, TOPICAL RINSE, 7-10 DAYS
     Route: 061

REACTIONS (3)
  - ORAL DISCOMFORT [None]
  - PAIN [None]
  - SKIN EXFOLIATION [None]
